FAERS Safety Report 8076268-X (Version None)
Quarter: 2012Q1

REPORT INFORMATION
  Report Type: 
  Country: None (occurrence: None)
  Receive Date: 20120127
  Receipt Date: 20120123
  Transmission Date: 20120608
  Serious: Yes (Hospitalization)
  Sender: FDA-Public Use
  Company Number: PL-PFIZER INC-2009153837

PATIENT
  Age: 60 Year
  Sex: Male
  Weight: 81 kg

DRUGS (10)
  1. NADROPARIN [Concomitant]
     Indication: THROMBOSIS
     Dosage: 0.6 ML, UNK
     Route: 058
  2. DROTAVERINE [Concomitant]
     Indication: MUSCLE SPASMS
  3. PHOSPHOLIPIDS [Concomitant]
     Indication: PROPHYLAXIS
  4. PLACEBO [Suspect]
     Indication: PROSTATE CANCER
     Dosage: UNK
     Route: 048
     Dates: start: 20081206, end: 20090104
  5. PREDNISONE [Suspect]
     Indication: PROSTATE CANCER
     Dosage: 5 MG, 2X/DAY
     Route: 048
     Dates: start: 20081206, end: 20090104
  6. OMEPRAZOLE [Concomitant]
     Indication: PROPHYLAXIS
  7. AMOXICILLIN AND CLAVULANIC ACID [Concomitant]
     Indication: URINARY TRACT INFECTION
     Route: 048
     Dates: start: 20081222, end: 20081229
  8. ZOLEDRONIC ACID [Concomitant]
     Indication: METASTASES TO BONE
     Dosage: 4 MG, UNK
     Route: 042
     Dates: start: 20081128
  9. MORPHINE SULFATE [Concomitant]
     Indication: ANALGESIC THERAPY
  10. COTRIM [Concomitant]
     Indication: URINARY TRACT INFECTION
     Dosage: UNK
     Route: 048
     Dates: start: 20081229, end: 20090102

REACTIONS (1)
  - URINARY TRACT INFECTION [None]
